FAERS Safety Report 18678406 (Version 1)
Quarter: 2020Q4

REPORT INFORMATION
  Report Type: Spontaneous
  Country: TR (occurrence: TR)
  Receive Date: 20201230
  Receipt Date: 20201230
  Transmission Date: 20210114
  Serious: Yes (Hospitalization, Other)
  Sender: FDA-Public Use
  Company Number: TR-LUPIN PHARMACEUTICALS INC.-2020-06335

PATIENT
  Age: 23 Year
  Sex: Male
  Weight: 80 kg

DRUGS (5)
  1. THIOPENTONE SODIUM [Concomitant]
     Active Substance: THIOPENTAL SODIUM
     Indication: INTRACRANIAL PRESSURE INCREASED
     Dosage: 3 MILLIGRAM/KILOGRAM
     Route: 065
  2. POTASSIUM [Suspect]
     Active Substance: POTASSIUM
     Dosage: UNK
     Route: 042
  3. MANNITOL. [Concomitant]
     Active Substance: MANNITOL
     Indication: INTRACRANIAL PRESSURE INCREASED
     Dosage: UNK
     Route: 065
  4. POTASSIUM [Suspect]
     Active Substance: POTASSIUM
     Indication: INTRACRANIAL PRESSURE INCREASED
     Dosage: UNK
  5. NOREPINEPHRINE. [Concomitant]
     Active Substance: NOREPINEPHRINE
     Indication: BLOOD PRESSURE MANAGEMENT
     Dosage: UNK
     Route: 065

REACTIONS (1)
  - Hyperkalaemia [Recovered/Resolved]
